FAERS Safety Report 24000531 (Version 1)
Quarter: 2024Q2

REPORT INFORMATION
  Report Type: Spontaneous
  Country: DE (occurrence: DE)
  Receive Date: 20240621
  Receipt Date: 20240621
  Transmission Date: 20240716
  Serious: Yes (Hospitalization)
  Sender: FDA-Public Use
  Company Number: DE-PHARMAMAR-20024PM000363

PATIENT
  Age: 32 Year
  Sex: Female

DRUGS (4)
  1. ZEPZELCA [Suspect]
     Active Substance: LURBINECTEDIN
     Indication: Small cell lung cancer extensive stage
     Dosage: UNK
  2. ZEPZELCA [Suspect]
     Active Substance: LURBINECTEDIN
     Dosage: 3.2 MILLIGRAM/SQ. METER, Q3W
     Route: 042
     Dates: start: 20240425, end: 20240425
  3. ZEPZELCA [Suspect]
     Active Substance: LURBINECTEDIN
     Dosage: UNK
     Dates: start: 20240523
  4. IRON [Concomitant]
     Active Substance: IRON
     Indication: Nutritional supplementation

REACTIONS (3)
  - Nausea [Recovered/Resolved]
  - Vomiting [Recovered/Resolved]
  - Alanine aminotransferase increased [Unknown]

NARRATIVE: CASE EVENT DATE: 20240426
